FAERS Safety Report 5679328-3 (Version None)
Quarter: 2008Q1

REPORT INFORMATION
  Report Type: 
  Country: None (occurrence: None)
  Receive Date: 20080325
  Receipt Date: 20080317
  Transmission Date: 20080703
  Serious: Yes (Other)
  Sender: FDA-Public Use
  Company Number: US-ELI_LILLY_AND_COMPANY-US200708001515

PATIENT
  Sex: Male

DRUGS (6)
  1. BYETTA [Suspect]
     Dosage: 5 UG, 2/D
     Route: 058
     Dates: start: 20060315, end: 20070427
  2. BYETTA [Suspect]
     Dosage: 10 UG, 2/D
     Route: 058
     Dates: start: 20070427, end: 20070716
  3. METFORMIN [Concomitant]
     Indication: DIABETES MELLITUS
     Dosage: 500 MG, UNKNOWN
     Dates: end: 20070710
  4. COZAAR [Concomitant]
     Indication: BLOOD PRESSURE INCREASED
     Dosage: 50 MG, UNK
     Dates: start: 20050813
  5. VYTORIN [Concomitant]
     Dosage: 1 D/F, UNKNOWN
  6. LEVITRA [Concomitant]
     Dosage: UNK, AS NEEDED

REACTIONS (1)
  - PERIPHERAL EMBOLISM [None]
